FAERS Safety Report 4822336-2 (Version None)
Quarter: 2005Q4

REPORT INFORMATION
  Report Type: 
  Country: None (occurrence: None)
  Receive Date: 20051103
  Receipt Date: 20051024
  Transmission Date: 20060501
  Serious: Yes (Hospitalization, Other)
  Sender: FDA-Public Use
  Company Number: 200509480

PATIENT
  Age: 75 Year
  Sex: Male
  Weight: 94 kg

DRUGS (18)
  1. STREPTASE [Suspect]
     Indication: PLEURAL DISORDER
     Dosage: 25 U DAILY IE
     Dates: start: 20050921, end: 20050922
  2. ENOXAPARIN SODIUM [Suspect]
     Indication: THROMBOSIS PROPHYLAXIS
     Dosage: 40 MG DAILY SC
     Route: 058
     Dates: start: 20050901, end: 20050912
  3. ENOXAPARIN SODIUM [Suspect]
     Indication: THROMBOSIS PROPHYLAXIS
     Dates: start: 20050915, end: 20050920
  4. ASPIRIN [Suspect]
     Indication: CARDIAC DISORDER
     Dosage: 81 MG DAILY PO
     Route: 048
  5. FUROSEMIDE [Concomitant]
  6. SPIRONOLACTONE [Concomitant]
  7. ALTACE [Concomitant]
  8. TOPROL-XL [Concomitant]
  9. CENTRUM [Concomitant]
  10. ADVAIR DISKUS 100/50 [Concomitant]
  11. BENADRYL [Concomitant]
  12. FOLATE [Concomitant]
  13. HEPARIN [Concomitant]
  14. THIAMINE [Concomitant]
  15. PREVACID [Concomitant]
  16. VICODIN [Concomitant]
  17. ALBUTEROL [Concomitant]
  18. HYDROCODONE [Concomitant]

REACTIONS (11)
  - ANAEMIA [None]
  - DYSPNOEA PAROXYSMAL NOCTURNAL [None]
  - HAEMORRHAGE [None]
  - HAEMOTHORAX [None]
  - HYPONATRAEMIA [None]
  - HYPOVOLAEMIA [None]
  - INAPPROPRIATE ANTIDIURETIC HORMONE SECRETION [None]
  - OEDEMA PERIPHERAL [None]
  - ORTHOPNOEA [None]
  - ORTHOSTATIC HYPOTENSION [None]
  - PLEURAL EFFUSION [None]
